FAERS Safety Report 8901899 (Version 1)
Quarter: 2012Q4

REPORT INFORMATION
  Report Type: Spontaneous
  Country: US (occurrence: None)
  Receive Date: 20121109
  Receipt Date: 20121109
  Transmission Date: 20130627
  Serious: Yes (Hospitalization)
  Sender: FDA-Public Use
  Company Number: None

PATIENT
  Sex: Male
  Weight: 67 kg

DRUGS (1)
  1. TARCEVA (ERLOTINIB) [Suspect]

REACTIONS (3)
  - Respiratory failure [None]
  - Lung cancer metastatic [None]
  - Disease progression [None]
